FAERS Safety Report 23023628 (Version 3)
Quarter: 2023Q4

REPORT INFORMATION
  Report Type: Spontaneous
  Country: US (occurrence: US)
  Receive Date: 20231003
  Receipt Date: 20231106
  Transmission Date: 20240110
  Serious: No
  Sender: FDA-Public Use
  Company Number: US-PFIZER INC-PV202300162648

PATIENT
  Age: 60 Year
  Sex: Male
  Weight: 110.75 kg

DRUGS (5)
  1. IBRANCE [Suspect]
     Active Substance: PALBOCICLIB
     Indication: Breast cancer male
     Dosage: Q 1-21
     Route: 048
     Dates: start: 20221014
  2. IBRANCE [Suspect]
     Active Substance: PALBOCICLIB
     Indication: Metastases to bone
  3. TAMOXIFEN [Concomitant]
     Active Substance: TAMOXIFEN
     Indication: Breast cancer male
     Dosage: Q 1-21, 28 DAY CYCLE; DURATION OF TREATMENT: INDEFINITE
     Route: 048
     Dates: start: 20221014
  4. ZOMETA [Concomitant]
     Active Substance: ZOLEDRONIC ACID
     Indication: Breast cancer male
     Dosage: Q 6 MONTHS; DURATION OF TREATMENT: INDEFINITE
     Route: 042
     Dates: start: 20221020
  5. ZOMETA [Concomitant]
     Active Substance: ZOLEDRONIC ACID
     Indication: Metastases to bone

REACTIONS (4)
  - Nausea [Unknown]
  - Fatigue [Unknown]
  - Anxiety [Unknown]
  - Eye discharge [Unknown]
